FAERS Safety Report 16171864 (Version 2)
Quarter: 2019Q3

REPORT INFORMATION
  Report Type: Report from Study
  Country: None (occurrence: NL)
  Receive Date: 20190408
  Receipt Date: 20190823
  Transmission Date: 20191004
  Serious: Yes (Other)
  Sender: FDA-Public Use
  Company Number: NL-ABBVIE-19S-114-2735178-00

PATIENT
  Sex: Female

DRUGS (2)
  1. LAXANTIS [Concomitant]
     Indication: ABNORMAL FAECES
     Route: 065
  2. DUODOPA [Suspect]
     Active Substance: CARBIDOPA\LEVODOPA
     Indication: PARKINSON^S DISEASE
     Route: 050
     Dates: start: 20170823

REACTIONS (4)
  - Stoma site odour [Unknown]
  - Stoma site extravasation [Unknown]
  - Stoma site discharge [Not Recovered/Not Resolved]
  - Medical device change [Unknown]
